FAERS Safety Report 7526087-5 (Version None)
Quarter: 2011Q2

REPORT INFORMATION
  Report Type: 
  Country: None (occurrence: None)
  Receive Date: 20110606
  Receipt Date: 20110531
  Transmission Date: 20111010
  Serious: Yes (Other)
  Sender: FDA-Public Use
  Company Number: ES-MERCK-1106ESP00001

PATIENT
  Age: 50 Year
  Sex: Male

DRUGS (1)
  1. INVANZ [Suspect]
     Route: 042
     Dates: end: 20110501

REACTIONS (1)
  - PSYCHOTIC DISORDER [None]
